FAERS Safety Report 14383340 (Version 1)
Quarter: 2018Q1

REPORT INFORMATION
  Report Type: Spontaneous
  Country: US (occurrence: US)
  Receive Date: 20180115
  Receipt Date: 20180115
  Transmission Date: 20180509
  Serious: Yes (Hospitalization)
  Sender: FDA-Public Use
  Company Number: US-BEH-2018086675

PATIENT
  Age: 85 Year
  Sex: Male
  Weight: 76.64 kg

DRUGS (32)
  1. PEPCID                             /00305201/ [Concomitant]
     Active Substance: ALUMINUM HYDROXIDE\MAGNESIUM CARBONATE
  2. IRON [Concomitant]
     Active Substance: IRON
  3. SIMVASTATIN. [Concomitant]
     Active Substance: SIMVASTATIN
  4. CEFUROXIME. [Concomitant]
     Active Substance: CEFUROXIME
  5. ACETAMINOPHEN. [Concomitant]
     Active Substance: ACETAMINOPHEN
  6. VITAMIN B12 [Concomitant]
     Active Substance: CYANOCOBALAMIN
  7. PREDNISONE. [Concomitant]
     Active Substance: PREDNISONE
  8. MUCINEX [Concomitant]
     Active Substance: GUAIFENESIN
  9. VITAMINS WITH MINERALS [Concomitant]
     Active Substance: MINERALS\VITAMINS
  10. PROAIR HFA [Concomitant]
     Active Substance: ALBUTEROL SULFATE
  11. EPINEPHRINE. [Concomitant]
     Active Substance: EPINEPHRINE
  12. KLOR-CON [Concomitant]
     Active Substance: POTASSIUM CHLORIDE
  13. ZEMAIRA [Suspect]
     Active Substance: .ALPHA.1-PROTEINASE INHIBITOR HUMAN
     Indication: ALPHA-1 ANTI-TRYPSIN DEFICIENCY
     Dosage: 60 MG/KG, UNK
     Route: 042
     Dates: start: 20160502
  14. CALTRATE D                         /00944201/ [Concomitant]
  15. VITAMIN D3 [Concomitant]
     Active Substance: CHOLECALCIFEROL
  16. DOCUSATE SOD [Concomitant]
  17. FUROSEMIDE. [Concomitant]
     Active Substance: FUROSEMIDE
  18. LOSARTAN. [Concomitant]
     Active Substance: LOSARTAN
  19. LMX                                /00033401/ [Concomitant]
  20. SODIUM CHLORIDE. [Concomitant]
     Active Substance: SODIUM CHLORIDE
  21. CELEXA [Concomitant]
     Active Substance: CITALOPRAM HYDROBROMIDE
  22. IPRATROPIUM BROMIDE AND ALBUTEROL SULFATE [Concomitant]
     Active Substance: ALBUTEROL SULFATE\IPRATROPIUM BROMIDE
  23. ADVAIR HFA [Concomitant]
     Active Substance: FLUTICASONE PROPIONATE\SALMETEROL XINAFOATE
  24. PROLIA [Concomitant]
     Active Substance: DENOSUMAB
  25. ZEMAIRA [Suspect]
     Active Substance: .ALPHA.1-PROTEINASE INHIBITOR HUMAN
     Dosage: UNK
     Route: 042
  26. GABAPENTIN. [Concomitant]
     Active Substance: GABAPENTIN
  27. OXYGEN. [Concomitant]
     Active Substance: OXYGEN
  28. MIRALAX [Concomitant]
     Active Substance: POLYETHYLENE GLYCOL 3350
  29. CARVEDILOL. [Concomitant]
     Active Substance: CARVEDILOL
  30. TYLENOL [Concomitant]
     Active Substance: ACETAMINOPHEN
  31. ELIQUIS [Concomitant]
     Active Substance: APIXABAN
  32. DIPHENHYDRAMINE. [Concomitant]
     Active Substance: DIPHENHYDRAMINE

REACTIONS (1)
  - Influenza [Unknown]

NARRATIVE: CASE EVENT DATE: 20180105
